FAERS Safety Report 10313617 (Version 3)
Quarter: 2014Q4

REPORT INFORMATION
  Report Type: Spontaneous
  Country: ES (occurrence: ES)
  Receive Date: 20140718
  Receipt Date: 20141029
  Transmission Date: 20150528
  Serious: Yes (Other)
  Sender: FDA-Public Use
  Company Number: ES-VERTEX PHARMACEUTICALS INC-2014-003165

PATIENT
  Sex: Male

DRUGS (6)
  1. PEGYLATED INTERFERON NOS [Suspect]
     Active Substance: PEGINTERFERON ALFA-2A OR PEGINTERFERON ALFA-2B OR PEGINTERFERON BETA-1A OR PEGINTERFERON LAMBDA-1A
     Dosage: DOSAGE FORM: UNSPECIFIED
     Route: 065
  2. PEGYLATED INTERFERON NOS [Suspect]
     Active Substance: PEGINTERFERON ALFA-2A OR PEGINTERFERON ALFA-2B OR PEGINTERFERON BETA-1A OR PEGINTERFERON LAMBDA-1A
     Indication: HEPATITIS C
     Dosage: DOSAGE FORM: UNSPECIFIED, PARTIAL RESPONSE DOSE DECREASED FROM 180 TO 135
     Route: 065
  3. INCIVO [Suspect]
     Active Substance: TELAPREVIR
     Indication: HEPATITIS C
     Dosage: UNK
     Route: 048
     Dates: start: 201402
  4. FERRITIN [Concomitant]
     Active Substance: FERRITIN
     Indication: HEPATITIS C
     Dosage: DOSAGE FORM: UNSPECIFIED, WITH OUT RESULTS
     Route: 065
  5. RIBAVIRIN. [Suspect]
     Active Substance: RIBAVIRIN
     Indication: HEPATITIS C
     Dosage: DOSAGE FORM: UNSPECIFIED, PARTIAL RESPONSE DOSE DECREASED FROM 2-0-3 TO 2-0-2
     Route: 065
  6. INTERFERON NOS [Suspect]
     Active Substance: INTERFERON
     Indication: HEPATITIS C
     Dosage: UNSPECIFIED, DOSE DECREASED FROM 180 TO 135
     Route: 065

REACTIONS (13)
  - Platelet count decreased [Recovering/Resolving]
  - Arthropathy [Unknown]
  - Myalgia [Unknown]
  - Malaise [Unknown]
  - Fatigue [Not Recovered/Not Resolved]
  - White blood cell count decreased [Unknown]
  - Pruritus [Not Recovered/Not Resolved]
  - Anaemia [Unknown]
  - Rash [Unknown]
  - Skin disorder [Recovering/Resolving]
  - Headache [Unknown]
  - Proctalgia [Recovering/Resolving]
  - Nausea [Not Recovered/Not Resolved]
